FAERS Safety Report 23261982 (Version 1)
Quarter: 2023Q4

REPORT INFORMATION
  Report Type: Report from Study
  Country: CA (occurrence: CA)
  Receive Date: 20231205
  Receipt Date: 20231205
  Transmission Date: 20240110
  Serious: Yes (Congenital Anomaly)
  Sender: FDA-Public Use
  Company Number: CA-TAKEDA-2023TUS116902

PATIENT
  Sex: Male
  Weight: 3.62 kg

DRUGS (4)
  1. VEDOLIZUMAB [Suspect]
     Active Substance: VEDOLIZUMAB
     Indication: Colitis ulcerative
     Dosage: 300 MILLIGRAM
     Route: 042
     Dates: start: 20190512
  2. VEDOLIZUMAB [Suspect]
     Active Substance: VEDOLIZUMAB
     Indication: Crohn^s disease
  3. PENTASA [Concomitant]
     Active Substance: MESALAMINE
     Dosage: 3 MILLIGRAM, QD
     Dates: start: 20190904
  4. BUDESONIDE [Concomitant]
     Active Substance: BUDESONIDE
     Dosage: UNK

REACTIONS (3)
  - Cryptorchism [Unknown]
  - Cardiac murmur [Unknown]
  - Foetal exposure during pregnancy [Unknown]
